FAERS Safety Report 5633524-X (Version None)
Quarter: 2008Q1

REPORT INFORMATION
  Report Type: 
  Country: None (occurrence: None)
  Receive Date: 20080221
  Receipt Date: 20080213
  Transmission Date: 20080703
  Serious: Yes (Hospitalization)
  Sender: FDA-Public Use
  Company Number: US-ELI_LILLY_AND_COMPANY-US200802002191

PATIENT
  Age: 2 Year

DRUGS (1)
  1. CYMBALTA [Suspect]
     Dosage: UNK, UNK
     Dates: start: 20080210, end: 20080210

REACTIONS (4)
  - ACCIDENTAL OVERDOSE [None]
  - LETHARGY [None]
  - MEDICATION ERROR [None]
  - SOMNOLENCE [None]
